FAERS Safety Report 9145979 (Version 1)
Quarter: 2013Q1

REPORT INFORMATION
  Report Type: Spontaneous
  Country: FR (occurrence: FR)
  Receive Date: 20130307
  Receipt Date: 20130307
  Transmission Date: 20140127
  Serious: Yes (Hospitalization, Other)
  Sender: FDA-Public Use
  Company Number: FR-AMGEN-FRASP2013015919

PATIENT
  Age: 42 Year
  Sex: Female

DRUGS (6)
  1. ENBREL [Suspect]
     Indication: RHEUMATOID ARTHRITIS
     Dosage: 50 MG, WEEKLY
     Route: 058
     Dates: start: 201211, end: 20121218
  2. ARAVA [Suspect]
     Dosage: 20 MG, 1X/DAY
     Route: 048
     Dates: start: 20121012, end: 20121224
  3. CORTANCYL [Suspect]
     Dosage: UNK
     Route: 048
     Dates: start: 201205
  4. DEROXAT [Concomitant]
     Dosage: 20 MG, 1X/DAY
     Dates: start: 2012
  5. INEXIUM /01479302/ [Concomitant]
     Dosage: 20 MG, 1X/DAY
     Dates: start: 201207
  6. APROVEL [Concomitant]
     Dosage: 150 MG, 1X/DAY
     Dates: start: 201211

REACTIONS (2)
  - Pneumocystis test positive [Unknown]
  - Interstitial lung disease [Recovered/Resolved]
